FAERS Safety Report 7457274-2 (Version None)
Quarter: 2011Q2

REPORT INFORMATION
  Report Type: 
  Country: None (occurrence: None)
  Receive Date: 20110504
  Receipt Date: 20110425
  Transmission Date: 20111010
  Serious: Yes (Other)
  Sender: FDA-Public Use
  Company Number: ES-ASTELLAS-2011EU002092

PATIENT
  Age: 24 Year
  Sex: Female

DRUGS (3)
  1. VORICONAZOLE [Concomitant]
     Indication: PNEUMONIA
     Dosage: 1 UNK, UNKNOWN/D
     Route: 065
  2. FUROSEMIDE [Concomitant]
     Dosage: UNK
     Route: 042
  3. MYCAMINE [Suspect]
     Indication: PNEUMONIA
     Dosage: 1 MG, UNKNOWN/D
     Route: 042
     Dates: start: 20110412

REACTIONS (1)
  - AGRANULOCYTOSIS [None]
